FAERS Safety Report 15661720 (Version 1)
Quarter: 2018Q4

REPORT INFORMATION
  Report Type: Spontaneous
  Country: DE (occurrence: DE)
  Receive Date: 20181127
  Receipt Date: 20181127
  Transmission Date: 20190205
  Serious: Yes (Hospitalization)
  Sender: FDA-Public Use
  Company Number: DE-TEVA-2018-DE-978545

PATIENT
  Age: 53 Year
  Sex: Female

DRUGS (3)
  1. OLANZAPIN [Suspect]
     Active Substance: OLANZAPINE
     Indication: SCHIZOPHRENIA
     Route: 048
  2. PANTOPRAZOL [Concomitant]
     Active Substance: PANTOPRAZOLE SODIUM
     Indication: CHRONIC GASTRITIS
     Dosage: PERMANENT INTAKE
     Route: 048
  3. OLANZAPIN [Suspect]
     Active Substance: OLANZAPINE
     Route: 048

REACTIONS (12)
  - Pharyngeal dystonia [Unknown]
  - Therapeutic response decreased [Unknown]
  - Nausea [Unknown]
  - Grunting [Unknown]
  - Somnolence [Unknown]
  - Alopecia [Unknown]
  - Vision blurred [Unknown]
  - Dizziness [Unknown]
  - Drug intolerance [Unknown]
  - Muscle twitching [Unknown]
  - Visual impairment [Unknown]
  - Constipation [Unknown]

NARRATIVE: CASE EVENT DATE: 20161219
